FAERS Safety Report 23514579 (Version 2)
Quarter: 2024Q1

REPORT INFORMATION
  Report Type: Spontaneous
  Country: US (occurrence: US)
  Receive Date: 20240212
  Receipt Date: 20240221
  Transmission Date: 20240410
  Serious: Yes (Death, Hospitalization, Other)
  Sender: FDA-Public Use
  Company Number: US-TOLMAR, INC.-24US046624

PATIENT
  Age: 60 Year
  Sex: Male

DRUGS (3)
  1. ELIGARD [Suspect]
     Active Substance: LEUPROLIDE ACETATE
     Indication: Prostate cancer
     Dosage: 45 MILLIGRAM, Q 6 MONTH
     Dates: start: 20230215
  2. ELIGARD [Suspect]
     Active Substance: LEUPROLIDE ACETATE
     Indication: Prostate cancer
     Dosage: UNK
  3. XTANDI [Concomitant]
     Active Substance: ENZALUTAMIDE
     Indication: Prostate cancer
     Dosage: UNK
     Route: 048
     Dates: end: 20221123

REACTIONS (9)
  - Death [Fatal]
  - Lumbar vertebral fracture [Unknown]
  - Abdominal pain [Unknown]
  - Gait inability [Unknown]
  - Weight decreased [Unknown]
  - Vomiting [Unknown]
  - Metastases to liver [Unknown]
  - Metastases to lung [Unknown]
  - Light chain analysis abnormal [Unknown]

NARRATIVE: CASE EVENT DATE: 20240111
